FAERS Safety Report 5712085-0 (Version None)
Quarter: 2008Q2

REPORT INFORMATION
  Report Type: 
  Country: None (occurrence: None)
  Receive Date: 20080418
  Receipt Date: 20080408
  Transmission Date: 20081010
  Serious: Yes (Other)
  Sender: FDA-Public Use
  Company Number: OPER20080071

PATIENT
  Sex: Male

DRUGS (1)
  1. OPANA ER [Suspect]
     Indication: NEUROPATHY PERIPHERAL
     Dosage: 10 MG

REACTIONS (2)
  - LOSS OF CONTROL OF LEGS [None]
  - SENSORY LOSS [None]
